FAERS Safety Report 15245006 (Version 1)
Quarter: 2018Q3

REPORT INFORMATION
  Report Type: Report from Study
  Country: ES (occurrence: ES)
  Receive Date: 20180806
  Receipt Date: 20180806
  Transmission Date: 20181010
  Serious: Yes (Other)
  Sender: FDA-Public Use
  Company Number: ES-MYLANLABS-2018M1058672

PATIENT
  Age: 9 Year
  Sex: Male

DRUGS (3)
  1. IBUPROFEN. [Suspect]
     Active Substance: IBUPROFEN
     Indication: PHARYNGITIS
     Route: 065
  2. IBUPROFEN. [Suspect]
     Active Substance: IBUPROFEN
     Indication: PYREXIA
  3. ACETYLSALICYLIC ACID [Suspect]
     Active Substance: ASPIRIN
     Indication: DRUG PROVOCATION TEST
     Dosage: ADMINISTERED AT INCREMENTAL DOSES AT AN INTERVAL OF 90 MINUTES ON 2 CONSECUTIVE DAYS. RECEIVED AS
     Route: 048

REACTIONS (10)
  - Angioedema [Unknown]
  - Pruritus [Unknown]
  - Nasal pruritus [Unknown]
  - Drug hypersensitivity [Unknown]
  - Conjunctival hyperaemia [Unknown]
  - Therapeutic product cross-reactivity [Unknown]
  - Rhinorrhoea [Unknown]
  - Asthma [Unknown]
  - Eye pruritus [Unknown]
  - Forced expiratory volume decreased [Unknown]
